FAERS Safety Report 10249408 (Version 1)
Quarter: 2014Q2

REPORT INFORMATION
  Report Type: Spontaneous
  Country: US (occurrence: None)
  Receive Date: 20140618
  Receipt Date: 20140618
  Transmission Date: 20141212
  Serious: Yes (Other)
  Sender: FDA-Public Use
  Company Number: None

PATIENT
  Age: 41 Year
  Sex: Female
  Weight: 80.29 kg

DRUGS (4)
  1. TAMOXIFEN [Suspect]
     Indication: CANCER HORMONAL THERAPY
  2. TAMOXIFEN [Suspect]
     Indication: HORMONE SUPPRESSION THERAPY
  3. TAMOXIFEN [Suspect]
     Indication: MENOPAUSE
  4. TAMOXIFEN [Suspect]
     Indication: BREAST CANCER

REACTIONS (3)
  - Abdominal pain [None]
  - Muscle spasms [None]
  - Middle insomnia [None]
